FAERS Safety Report 5976228-6 (Version None)
Quarter: 2008Q4

REPORT INFORMATION
  Report Type: 
  Country: None (occurrence: None)
  Receive Date: 20081126
  Receipt Date: 20080527
  Transmission Date: 20090506
  Serious: Yes (Other)
  Sender: FDA-Public Use
  Company Number: 2008BH005582

PATIENT
  Age: 51 Year
  Sex: Female

DRUGS (9)
  1. DIANEAL [Suspect]
     Indication: PERITONEAL DIALYSIS
     Dosage: IP
     Route: 033
     Dates: start: 20070801
  2. DIANEAL [Suspect]
     Indication: PERITONEAL DIALYSIS
     Dosage: IP
     Route: 033
     Dates: start: 20070801
  3. HECTOROL [Concomitant]
  4. CARDIZEM CD [Concomitant]
  5. GENTAMICIN [Concomitant]
  6. NEPHROCAPS [Concomitant]
  7. PHOSLO [Concomitant]
  8. ADVAIR HFA [Concomitant]
  9. ALBUTEROL [Concomitant]

REACTIONS (1)
  - PERITONITIS [None]
